FAERS Safety Report 9310338 (Version 3)
Quarter: 2014Q2

REPORT INFORMATION
  Report Type: Spontaneous
  Country: US (occurrence: US)
  Receive Date: 20130527
  Receipt Date: 20140512
  Transmission Date: 20141212
  Serious: Yes (Hospitalization)
  Sender: FDA-Public Use
  Company Number: US-PFIZER INC-2013157543

PATIENT
  Age: 62 Year
  Sex: Male
  Weight: 82.09 kg

DRUGS (1)
  1. VFEND [Suspect]
     Dosage: 250 MG, UNK
     Route: 048

REACTIONS (1)
  - Blood disorder [Unknown]
